FAERS Safety Report 16586235 (Version 1)
Quarter: 2019Q3

REPORT INFORMATION
  Report Type: Spontaneous
  Country: US (occurrence: US)
  Receive Date: 20190717
  Receipt Date: 20190717
  Transmission Date: 20191004
  Serious: No
  Sender: FDA-Public Use
  Company Number: US-BELOTECA, INC.-2070932

PATIENT
  Sex: Female

DRUGS (2)
  1. DIAZEPAM. [Suspect]
     Active Substance: DIAZEPAM
  2. DIAZEPAM INJECTION, USP [Suspect]
     Active Substance: DIAZEPAM
     Route: 042
     Dates: start: 20190516, end: 20190516

REACTIONS (3)
  - Vascular access complication [Unknown]
  - Incorrect dose administered [Recovered/Resolved]
  - Vascular access site haemorrhage [Unknown]

NARRATIVE: CASE EVENT DATE: 20190516
